FAERS Safety Report 5156895-X (Version None)
Quarter: 2006Q3

REPORT INFORMATION
  Report Type: 
  Country: None (occurrence: None)
  Receive Date: 20060918
  Receipt Date: 20060625
  Transmission Date: 20061208
  Serious: Yes (Other)
  Sender: FDA-Public Use
  Company Number: US-JNJFOC-20060605380

PATIENT
  Age: 46 Year
  Sex: Female

DRUGS (1)
  1. TOPAMAX [Suspect]
     Indication: SUICIDE ATTEMPT
     Dosage: 100 MG, 50 IN 1 TOTAL
     Dates: start: 20060825

REACTIONS (1)
  - SUICIDE ATTEMPT [None]
